FAERS Safety Report 7360908-4 (Version None)
Quarter: 2011Q1

REPORT INFORMATION
  Report Type: 
  Country: None (occurrence: None)
  Receive Date: 20110318
  Receipt Date: 20110307
  Transmission Date: 20110831
  Serious: Yes (Other)
  Sender: FDA-Public Use
  Company Number: PHHY2011CA12410

PATIENT
  Sex: Female

DRUGS (7)
  1. ATENOLOL [Concomitant]
  2. TYLENOL-500 [Concomitant]
     Dosage: 500 MG, QID
  3. CALCIUM [Concomitant]
     Dosage: 1 DF, BID
  4. ACLASTA [Suspect]
     Indication: OSTEOPOROSIS
     Dosage: UNK
     Route: 042
     Dates: start: 20100510
  5. ATIVAN [Concomitant]
  6. VITAMIN D [Concomitant]
     Dosage: 1 DF, WEEKLY
  7. ASPIRIN [Concomitant]
     Dosage: 1 DF, QD

REACTIONS (2)
  - COGNITIVE DISORDER [None]
  - DEMENTIA [None]
